FAERS Safety Report 17559330 (Version 4)
Quarter: 2020Q4

REPORT INFORMATION
  Report Type: Other
  Country: DE (occurrence: DE)
  Receive Date: 20200319
  Receipt Date: 20201117
  Transmission Date: 20210113
  Serious: No
  Sender: FDA-Public Use
  Company Number: DE-ROCHE-2545892

PATIENT
  Age: 23 Year
  Sex: Female

DRUGS (5)
  1. QUETIAPIN [Concomitant]
     Active Substance: QUETIAPINE
  2. ALPICORT [Concomitant]
  3. OCREVUS [Suspect]
     Active Substance: OCRELIZUMAB
     Route: 042
     Dates: start: 20200826
  4. ESCITALOPRAM [Concomitant]
     Active Substance: ESCITALOPRAM OXALATE
  5. OCREVUS [Suspect]
     Active Substance: OCRELIZUMAB
     Indication: RELAPSING-REMITTING MULTIPLE SCLEROSIS
     Dosage: 19/FEB/2020
     Route: 042
     Dates: start: 20200205

REACTIONS (16)
  - Fatigue [Not Recovered/Not Resolved]
  - Nausea [Not Recovered/Not Resolved]
  - Dyspnoea [Recovered/Resolved]
  - Chills [Recovered/Resolved]
  - Gastrointestinal infection [Recovered/Resolved]
  - Feeling hot [Recovered/Resolved]
  - Muscle spasms [Not Recovered/Not Resolved]
  - Seasonal allergy [Recovered/Resolved]
  - Blood pressure decreased [Recovered/Resolved]
  - Oral herpes [Recovered/Resolved]
  - Tremor [Not Recovered/Not Resolved]
  - Pruritus [Not Recovered/Not Resolved]
  - Body temperature decreased [Recovered/Resolved]
  - Dyspepsia [Not Recovered/Not Resolved]
  - Swelling [Recovered/Resolved]
  - Blood test abnormal [Not Recovered/Not Resolved]

NARRATIVE: CASE EVENT DATE: 20200205
